FAERS Safety Report 8807610 (Version 1)
Quarter: 2012Q4

REPORT INFORMATION
  Report Type: 
  Country: IT (occurrence: ES)
  Receive Date: 20120925
  Receipt Date: 20120925
  Transmission Date: 20130627
  Serious: No
  Sender: FDA-Public Use
  Company Number: ES-FRI-1000038730

PATIENT
  Age: 75 Year
  Sex: Male

DRUGS (6)
  1. NEBIVOLOL [Suspect]
     Indication: ARRHYTHMIA
     Dosage: 5 mg
     Route: 048
     Dates: start: 20120727, end: 20120810
  2. EUCREAS [Suspect]
     Indication: TYPE 2 DIABETES MELLITUS
     Dosage: 50/1000 mg daily
     Route: 048
     Dates: start: 20120727, end: 20120806
  3. SEVIKAR [Suspect]
     Indication: HYPERTENSION
     Dosage: 40/10/12.5 mg
     Route: 048
     Dates: start: 20120727, end: 20120810
  4. CRESTOR [Concomitant]
     Indication: HYPERCHOLESTEROLAEMIA
     Dosage: 20 mg
     Route: 048
  5. ALLOPURINOL [Concomitant]
     Indication: HYPERURICAEMIA
     Route: 048
  6. SINTROM [Concomitant]
     Indication: ARRHYTHMIA
     Dosage: 4 mg
     Route: 048

REACTIONS (6)
  - Dyspnoea [Recovering/Resolving]
  - Somnolence [Recovering/Resolving]
  - Asthenia [Recovering/Resolving]
  - Urinary incontinence [Not Recovered/Not Resolved]
  - Generalised oedema [Recovering/Resolving]
  - Drug interaction [Recovering/Resolving]
